FAERS Safety Report 6976591-3 (Version None)
Quarter: 2010Q3

REPORT INFORMATION
  Report Type: 
  Country: None (occurrence: None)
  Receive Date: 20100910
  Receipt Date: 20100830
  Transmission Date: 20110219
  Serious: Yes (Other)
  Sender: FDA-Public Use
  Company Number: US-SANOFI-AVENTIS-2010SA052459

PATIENT
  Age: 86 Year
  Sex: Female
  Weight: 51.7 kg

DRUGS (10)
  1. PLAVIX [Suspect]
     Indication: STENT PLACEMENT
     Route: 065
  2. LEVOTHYROXINE SODIUM [Concomitant]
  3. LISINOPRIL [Concomitant]
  4. VITAMINS [Concomitant]
  5. LOVAZA [Concomitant]
  6. CALCIUM [Concomitant]
  7. ASPIRIN [Concomitant]
  8. ZETIA [Concomitant]
  9. ARICEPT [Concomitant]
  10. TEMAZEPAM [Concomitant]

REACTIONS (5)
  - CONTUSION [None]
  - RASH [None]
  - SKIN ATROPHY [None]
  - TRAUMATIC HAEMORRHAGE [None]
  - WEIGHT DECREASED [None]
